FAERS Safety Report 5997124-4 (Version None)
Quarter: 2008Q4

REPORT INFORMATION
  Report Type: 
  Country: None (occurrence: None)
  Receive Date: 20081212
  Receipt Date: 20081030
  Transmission Date: 20090506
  Serious: No
  Sender: FDA-Public Use
  Company Number: US-ABBOTT-08P-163-0484802-00

PATIENT
  Sex: Male

DRUGS (2)
  1. HUMIRA [Suspect]
     Indication: PSORIASIS
     Route: 058
     Dates: start: 20080901
  2. SERTRALINE [Concomitant]
     Indication: DEPRESSION

REACTIONS (6)
  - COUGH [None]
  - DYSGEUSIA [None]
  - FEELING JITTERY [None]
  - NERVOUSNESS [None]
  - OSTEOARTHRITIS [None]
  - WEIGHT DECREASED [None]
